FAERS Safety Report 9537734 (Version 2)
Quarter: 2013Q3

REPORT INFORMATION
  Report Type: Report from Study
  Country: JP (occurrence: JP)
  Receive Date: 20130919
  Receipt Date: 20130919
  Transmission Date: 20140515
  Serious: Yes (Other)
  Sender: FDA-Public Use
  Company Number: JP-OTSUKA-JP-2013-12927

PATIENT
  Age: 90 Year
  Sex: Female
  Weight: 39.1 kg

DRUGS (10)
  1. SAMSCA [Suspect]
     Indication: FLUID RETENTION
     Dosage: 7.5 MG MILLIGRAM(S), QAM
     Route: 048
     Dates: start: 20121108, end: 20121121
  2. AMLODIPINE [Concomitant]
     Dosage: 20 MG MILLIGRAM(S), DAILY DOSE
     Route: 048
  3. ARTIST [Concomitant]
     Dosage: 10 MG MILLIGRAM(S), DAILY DOSE
     Route: 048
  4. ADALAT [Concomitant]
     Dosage: 20 MG MILLIGRAM(S), DAILY DOSE
     Route: 048
  5. ARGAMATE [Concomitant]
     Dosage: 25 G GRAM(S), DAILY DOSE
     Route: 048
  6. CARDENALIN [Concomitant]
     Dosage: 1 MG MILLIGRAM(S), DAILY DOSE
     Route: 048
  7. DIART [Concomitant]
     Dosage: 30 MG MILLIGRAM(S), DAILY DOSE
     Route: 048
  8. GENTACIN [Concomitant]
     Dosage: 10 MG MILLIGRAM(S), DAILY DOSE
     Route: 061
  9. LASIX [Concomitant]
     Dosage: 20 MG MILLIGRAM(S), DAILY DOSE
     Route: 048
     Dates: start: 20121115
  10. OLMETEC [Concomitant]
     Dosage: 40 MG MILLIGRAM(S), DAILY DOSE
     Route: 048
     Dates: start: 20121115

REACTIONS (4)
  - Blood urea increased [Unknown]
  - Blood creatinine increased [Unknown]
  - Eczema [Recovered/Resolved]
  - Diarrhoea [Recovered/Resolved]
